FAERS Safety Report 15331511 (Version 13)
Quarter: 2020Q1

REPORT INFORMATION
  Report Type: Report from Study
  Country: US (occurrence: US)
  Receive Date: 20180829
  Receipt Date: 20200210
  Transmission Date: 20200409
  Serious: Yes (Hospitalization, Other)
  Sender: FDA-Public Use
  Company Number: US-MALLINCKRODT-T201803044

PATIENT
  Age: 70 Year
  Sex: Female

DRUGS (10)
  1. REPOSITORY CORTICOTROPIN INJECTION [Suspect]
     Active Substance: CORTICOTROPIN
     Dosage: 80 UNITS/1 ML,  EVERY 3 DAYS / EVERY 72 HOURS
     Route: 058
     Dates: start: 2018, end: 2018
  2. REPOSITORY CORTICOTROPIN INJECTION [Suspect]
     Active Substance: CORTICOTROPIN
     Dosage: 80 UNITS/1 ML, 1 TIME WEEKLY, FRIDAY
     Route: 058
     Dates: start: 20181123, end: 201907
  3. VITAMINS [Concomitant]
     Active Substance: VITAMINS
     Indication: PRODUCT USED FOR UNKNOWN INDICATION
     Dosage: UNK
     Route: 065
  4. REPOSITORY CORTICOTROPIN INJECTION [Suspect]
     Active Substance: CORTICOTROPIN
     Indication: SARCOIDOSIS
     Dosage: 80 UNITS/1 ML, EVERY 3 DAYS/EVERY 72 HOURS
     Route: 058
     Dates: start: 20180625, end: 2018
  5. REPOSITORY CORTICOTROPIN INJECTION [Suspect]
     Active Substance: CORTICOTROPIN
     Dosage: 80 UNITS/1 ML, 1 TIME WEEKLY FRIDAY
     Route: 058
     Dates: start: 20180720, end: 20180803
  6. REPOSITORY CORTICOTROPIN INJECTION [Suspect]
     Active Substance: CORTICOTROPIN
     Dosage: 80 UNITS / 1 ML, 1 TIME WEEKLY,(FRIDAY)
     Route: 058
  7. CALCIUM [Concomitant]
     Active Substance: CALCIUM
     Indication: PRODUCT USED FOR UNKNOWN INDICATION
     Dosage: UNK
     Route: 065
  8. REPOSITORY CORTICOTROPIN INJECTION [Suspect]
     Active Substance: CORTICOTROPIN
     Dosage: 80 UNITS/1 ML, TWICE A WEEK (WEDNESDAY/FRIDAY)
     Route: 058
     Dates: start: 201907
  9. REPOSITORY CORTICOTROPIN INJECTION [Suspect]
     Active Substance: CORTICOTROPIN
     Dosage: 40 UNITS / 0.5 ML, 1 TIME WEEKLY,(FRIDAY)
     Route: 058
     Dates: start: 20200124
  10. VITAMIN D [Concomitant]
     Active Substance: VITAMIN D NOS
     Indication: PRODUCT USED FOR UNKNOWN INDICATION
     Dosage: UNK
     Route: 065

REACTIONS (40)
  - Rheumatoid arthritis [Not Recovered/Not Resolved]
  - Condition aggravated [Unknown]
  - Hypersensitivity [Unknown]
  - Skin mass [Unknown]
  - Sensitivity to weather change [Unknown]
  - Fatigue [Unknown]
  - Dysphonia [Unknown]
  - Product dose omission [Unknown]
  - Sarcoidosis [Unknown]
  - Blood pressure fluctuation [Recovering/Resolving]
  - Visual acuity reduced [Not Recovered/Not Resolved]
  - Facial paralysis [Recovering/Resolving]
  - Cerebrovascular accident [Recovering/Resolving]
  - Herpes zoster [Unknown]
  - Palpitations [Unknown]
  - Drug ineffective [Unknown]
  - Headache [Recovering/Resolving]
  - Pain [Unknown]
  - Memory impairment [Unknown]
  - Skin discolouration [Unknown]
  - Gait inability [Unknown]
  - Incorrect dose administered [Unknown]
  - Infection [Unknown]
  - Nervous system disorder [Unknown]
  - Asthenia [Unknown]
  - Osteoarthritis [Unknown]
  - Bone disorder [Unknown]
  - Diabetes mellitus [Not Recovered/Not Resolved]
  - Viral infection [Not Recovered/Not Resolved]
  - Stress [Unknown]
  - Intervertebral disc protrusion [Unknown]
  - Haemodynamic instability [Unknown]
  - Muscle spasms [Unknown]
  - Influenza [Recovering/Resolving]
  - Blood pressure increased [Not Recovered/Not Resolved]
  - Pulmonary hypertension [Unknown]
  - Pulmonary valve incompetence [Unknown]
  - Malaise [Unknown]
  - Spinal stenosis [Unknown]
  - Dizziness [Unknown]

NARRATIVE: CASE EVENT DATE: 2018
